FAERS Safety Report 10960743 (Version 1)
Quarter: 2015Q1

REPORT INFORMATION
  Report Type: Spontaneous
  Country: US (occurrence: None)
  Receive Date: 20150326
  Receipt Date: 20150326
  Transmission Date: 20150721
  Serious: No
  Sender: FDA-Public Use
  Company Number: None

PATIENT
  Age: 19 Year
  Sex: Female
  Weight: 52.16 kg

DRUGS (3)
  1. WOMEN^S ONE A DAY GUMMY VITAMIN [Concomitant]
  2. MUCINEX DM [Suspect]
     Active Substance: DEXTROMETHORPHAN HYDROBROMIDE\GUAIFENESIN
     Indication: COUGH
     Dosage: 1 PILL TWICE DAILY TAKEN BY MOUTH
     Route: 048
     Dates: start: 20150325, end: 20150325
  3. MUCINEX DM [Suspect]
     Active Substance: DEXTROMETHORPHAN HYDROBROMIDE\GUAIFENESIN
     Indication: NASOPHARYNGITIS
     Dosage: 1 PILL TWICE DAILY TAKEN BY MOUTH
     Route: 048
     Dates: start: 20150325, end: 20150325

REACTIONS (6)
  - Dyspnoea [None]
  - Heart rate increased [None]
  - Anxiety [None]
  - Panic attack [None]
  - Tachyphrenia [None]
  - Tremor [None]

NARRATIVE: CASE EVENT DATE: 20150325
